FAERS Safety Report 8833844 (Version 1)
Quarter: 2012Q4

REPORT INFORMATION
  Report Type: 
  Country: IN (occurrence: IN)
  Receive Date: 20121011
  Receipt Date: 20121011
  Transmission Date: 20130627
  Serious: Yes (Hospitalization)
  Sender: FDA-Public Use
  Company Number: IN-RANBAXY-2012R1-60794

PATIENT
  Age: 58 Year
  Sex: Female

DRUGS (3)
  1. ACECLOFENAC [Suspect]
     Indication: OSTEOARTHRITIS
     Dosage: UNK
     Route: 065
  2. HYDROCHLOROTHIAZIDE [Interacting]
     Indication: HYPERTENSION
     Dosage: UNK
     Route: 065
  3. LITHIUM [Interacting]
     Indication: BIPOLAR DISORDER
     Dosage: 600mg/day
     Route: 065

REACTIONS (2)
  - Toxicity to various agents [Recovered/Resolved]
  - Drug interaction [Recovered/Resolved]
